FAERS Safety Report 5836976-5 (Version None)
Quarter: 2008Q3

REPORT INFORMATION
  Report Type: 
  Country: None (occurrence: None)
  Receive Date: 20080805
  Receipt Date: 20080723
  Transmission Date: 20090109
  Serious: No
  Sender: FDA-Public Use
  Company Number: 20085426

PATIENT
  Sex: Female

DRUGS (2)
  1. LIORESAL [Suspect]
     Indication: MUSCLE SPASTICITY
     Dosage: DAILY, INTRATHECAL
     Route: 037
     Dates: start: 20080401
  2. DILAUDID [Concomitant]

REACTIONS (10)
  - BLOOD PRESSURE FLUCTUATION [None]
  - CRYING [None]
  - EMOTIONAL DISTRESS [None]
  - HYPOAESTHESIA [None]
  - LOSS OF CONSCIOUSNESS [None]
  - MUSCULAR WEAKNESS [None]
  - OEDEMA PERIPHERAL [None]
  - PAIN [None]
  - SKIN DISCOLOURATION [None]
  - URINARY RETENTION [None]
